FAERS Safety Report 5041971-2 (Version None)
Quarter: 2006Q2

REPORT INFORMATION
  Report Type: 
  Country: None (occurrence: None)
  Receive Date: 20060630
  Receipt Date: 20060626
  Transmission Date: 20061013
  Serious: Yes (Hospitalization)
  Sender: FDA-Public Use
  Company Number: US-2005-013750

PATIENT
  Age: 54 Year
  Sex: Female
  Weight: 69.4 kg

DRUGS (9)
  1. CLIMARA [Suspect]
     Indication: MENOPAUSAL SYMPTOMS
     Dosage: 0.025 MG/D, CONT, TRANSDERMAL
     Route: 062
     Dates: start: 20010615, end: 20011001
  2. PREMARIN [Suspect]
     Indication: MENOPAUSAL SYMPTOMS
     Dosage: 0.625 MG,
     Dates: start: 19981001, end: 20010101
  3. CYCRIN [Suspect]
     Indication: MENOPAUSAL SYMPTOMS
     Dosage: 5 AND 2.5 MG
     Dates: start: 19980428, end: 19990101
  4. PROMETRIUM [Suspect]
     Indication: MENOPAUSAL SYMPTOMS
     Dosage: 100 MG
     Dates: start: 20010615, end: 20010901
  5. ACTIVELLA [Suspect]
     Indication: MENOPAUSAL SYMPTOMS
     Dates: start: 20011201, end: 20020501
  6. MEDROXYPROGESTERONE [Suspect]
     Indication: MENOPAUSAL SYMPTOMS
     Dosage: 5 MG
     Dates: start: 20000115, end: 20010801
  7. REMERON [Concomitant]
  8. AMBIEN [Concomitant]
  9. CLONAZEPAM [Concomitant]

REACTIONS (10)
  - ADENOMYOSIS [None]
  - AMNESIA [None]
  - ANXIETY [None]
  - BLOOD CHOLESTEROL INCREASED [None]
  - DEPRESSION [None]
  - FATIGUE [None]
  - LOW DENSITY LIPOPROTEIN INCREASED [None]
  - OVARIAN CANCER [None]
  - OVARIAN GRANULOSA-THECA CELL TUMOUR [None]
  - UTERINE LEIOMYOMA [None]
